FAERS Safety Report 9516899 (Version 1)
Quarter: 2013Q1

REPORT INFORMATION
  Report Type: Spontaneous
  Country: US (occurrence: None)
  Receive Date: 20130305
  Receipt Date: 20130305
  Transmission Date: 20140127
  Serious: Yes (Other)
  Sender: FDA-Public Use
  Company Number: 163-21880-12081111

PATIENT
  Age: 66 Year
  Sex: Female
  Weight: 91.17 kg

DRUGS (5)
  1. REVLIMID [Suspect]
     Indication: PLASMA CELL MYELOMA
     Route: 048
     Dates: start: 20111018
  2. ASPIRIN (ACETYLSALICYLIC ACID) [Concomitant]
  3. MULTIVITAMIN (MULTIVITAMINS) [Concomitant]
  4. VITAMIN D (ERGOCALCIFEROL) [Concomitant]
  5. BACTRIM (BACTRIM) [Concomitant]

REACTIONS (2)
  - Full blood count decreased [None]
  - Constipation [None]
